FAERS Safety Report 14128591 (Version 4)
Quarter: 2018Q1

REPORT INFORMATION
  Report Type: Spontaneous
  Country: US (occurrence: US)
  Receive Date: 20171026
  Receipt Date: 20180129
  Transmission Date: 20180508
  Serious: No
  Sender: FDA-Public Use
  Company Number: US-CELGENEUS-USA-20171007290

PATIENT
  Sex: Female

DRUGS (7)
  1. CEFDINIR. [Concomitant]
     Active Substance: CEFDINIR
     Indication: PRODUCT USED FOR UNKNOWN INDICATION
     Route: 065
  2. FLUTICASONE. [Concomitant]
     Active Substance: FLUTICASONE
     Indication: PRODUCT USED FOR UNKNOWN INDICATION
     Dosage: 200 MICROGRAM
     Route: 045
  3. NEXPLANON IMP [Concomitant]
     Indication: PRODUCT USED FOR UNKNOWN INDICATION
     Route: 065
  4. OTEZLA [Suspect]
     Active Substance: APREMILAST
     Dosage: 60 MILLIGRAM
     Route: 048
     Dates: start: 2017
  5. FLUTICASONE. [Concomitant]
     Active Substance: FLUTICASONE
     Dosage: 150 MILLIGRAM
     Route: 048
  6. AMOX/K CLAV [Concomitant]
     Active Substance: AMOXICILLIN\CLAVULANATE POTASSIUM
     Indication: PRODUCT USED FOR UNKNOWN INDICATION
     Dosage: 875-125
     Route: 048
  7. OTEZLA [Suspect]
     Active Substance: APREMILAST
     Indication: PSORIASIS
     Dosage: STARTER PACK
     Route: 048
     Dates: start: 20171024

REACTIONS (5)
  - Memory impairment [Not Recovered/Not Resolved]
  - Frequent bowel movements [Unknown]
  - Drug dose omission [Unknown]
  - Nausea [Recovered/Resolved]
  - Rash [Unknown]

NARRATIVE: CASE EVENT DATE: 2017
